FAERS Safety Report 4311296-9 (Version None)
Quarter: 2004Q1

REPORT INFORMATION
  Report Type: 
  Country: None (occurrence: None)
  Receive Date: 20040304
  Receipt Date: 20040220
  Transmission Date: 20041129
  Serious: Yes (Life-Threatening, Hospitalization)
  Sender: FDA-Public Use
  Company Number: DK-GLAXOSMITHKLINE-B0324010A

PATIENT
  Age: 41 Year
  Sex: Male
  Weight: 175 kg

DRUGS (4)
  1. AVANDIA [Suspect]
     Indication: DIABETES MELLITUS
     Dosage: 4MG TWICE PER DAY
     Route: 048
     Dates: start: 20001101, end: 20040112
  2. METFORMIN [Suspect]
     Route: 048
     Dates: start: 20001101, end: 20040112
  3. TENORMIN [Suspect]
     Route: 048
  4. LISINOPRIL [Suspect]
     Route: 048

REACTIONS (2)
  - FLUID RETENTION [None]
  - RESPIRATORY FAILURE [None]
